FAERS Safety Report 13125542 (Version 1)
Quarter: 2017Q1

REPORT INFORMATION
  Report Type: Spontaneous
  Country: US (occurrence: US)
  Receive Date: 20170117
  Receipt Date: 20170117
  Transmission Date: 20170428
  Serious: Yes (Other)
  Sender: FDA-Public Use
  Company Number: None

PATIENT
  Age: 27 Day
  Sex: Female
  Weight: 54 kg

DRUGS (2)
  1. GAMMAPLEX [Suspect]
     Active Substance: HUMAN IMMUNOGLOBULIN G
     Indication: BLOOD IMMUNOGLOBULIN G DECREASED
     Dosage: OTHER FREQUENCY:EVERY 4 WEEKS;?
     Route: 051
     Dates: start: 20170116, end: 20170116
  2. GAMMAPLEX [Suspect]
     Active Substance: HUMAN IMMUNOGLOBULIN G
     Indication: BLOOD IMMUNOGLOBULIN G DECREASED
     Dosage: OTHER FREQUENCY:EVRY 4 WEEKS;?
     Route: 051
     Dates: start: 20170116, end: 20170116

REACTIONS (4)
  - Infusion related reaction [None]
  - Throat irritation [None]
  - Pruritus [None]
  - Throat tightness [None]

NARRATIVE: CASE EVENT DATE: 20170116
